FAERS Safety Report 18310681 (Version 5)
Quarter: 2020Q4

REPORT INFORMATION
  Report Type: Spontaneous
  Country: JP (occurrence: JP)
  Receive Date: 20200925
  Receipt Date: 20201222
  Transmission Date: 20210113
  Serious: Yes (Hospitalization)
  Sender: FDA-Public Use
  Company Number: JP-KYOWAKIRIN-2020AKK015433

PATIENT

DRUGS (32)
  1. PREDONINE [Concomitant]
     Active Substance: PREDNISOLONE
     Indication: ADULT T-CELL LYMPHOMA/LEUKAEMIA
     Dosage: 60 MG
     Route: 042
     Dates: start: 20191128, end: 20200604
  2. CLEITON [Concomitant]
     Active Substance: HYDROCORTISONE SODIUM PHOSPHATE
     Indication: PROPHYLAXIS
     Dosage: 100 MG
     Route: 042
     Dates: start: 20200115, end: 20200601
  3. ACICLOVIR [Concomitant]
     Active Substance: ACYCLOVIR
     Indication: PROPHYLAXIS
     Dosage: 200 MG
     Route: 048
     Dates: start: 20200220, end: 20200618
  4. LOXOPROFEN [Concomitant]
     Active Substance: LOXOPROFEN
     Indication: PROPHYLAXIS
     Dosage: 60 MG
     Route: 048
     Dates: start: 20200115, end: 20200601
  5. ENDOXAN [CYCLOPHOSPHAMIDE MONOHYDRATE] [Concomitant]
     Active Substance: CYCLOPHOSPHAMIDE
     Dosage: 245 MG/M2
     Route: 042
     Dates: start: 20200514, end: 20200514
  6. ETOPOSIDE. [Concomitant]
     Active Substance: ETOPOSIDE
     Indication: ADULT T-CELL LYMPHOMA/LEUKAEMIA
     Dosage: 100 MG/M2
     Route: 042
     Dates: start: 20191217, end: 20200308
  7. CARBOPLATIN. [Concomitant]
     Active Substance: CARBOPLATIN
     Indication: ADULT T-CELL LYMPHOMA/LEUKAEMIA
     Dosage: 250 MG/M2
     Route: 042
     Dates: start: 20191217, end: 20200306
  8. ALOXI [Concomitant]
     Active Substance: PALONOSETRON HYDROCHLORIDE
     Indication: PROPHYLAXIS
     Dosage: 0.75 MG
     Route: 042
     Dates: start: 20200114, end: 20200602
  9. EMEND [Concomitant]
     Active Substance: APREPITANT
     Indication: PROPHYLAXIS
     Dosage: 125 MG
     Route: 048
     Dates: start: 20200114, end: 20200602
  10. EMEND [Concomitant]
     Active Substance: APREPITANT
     Dosage: 80 MG
     Route: 048
     Dates: start: 20200115, end: 20200603
  11. DAIPHEN [Concomitant]
     Active Substance: SULFAMETHOXAZOLE\TRIMETHOPRIM
     Indication: PROPHYLAXIS
     Dosage: UNK
     Route: 048
     Dates: end: 20200624
  12. ONCOVIN [Concomitant]
     Active Substance: VINCRISTINE SULFATE
     Dosage: 0.7 MG/M2
     Route: 042
     Dates: start: 20200514, end: 20200514
  13. ENDOXAN [CYCLOPHOSPHAMIDE MONOHYDRATE] [Concomitant]
     Active Substance: CYCLOPHOSPHAMIDE
     Indication: ADULT T-CELL LYMPHOMA/LEUKAEMIA
     Dosage: 350 MG/M2
     Route: 042
     Dates: start: 20191128, end: 20200327
  14. FILDESIN [Concomitant]
     Active Substance: VINDESINE SULFATE
     Indication: ADULT T-CELL LYMPHOMA/LEUKAEMIA
     Dosage: 2.4 MG/M2
     Route: 042
     Dates: start: 20191217, end: 20200306
  15. LANSOPRAZOLE. [Concomitant]
     Active Substance: LANSOPRAZOLE
     Indication: PROPHYLAXIS
     Dosage: 15 MG
     Route: 048
     Dates: start: 20200114, end: 20200220
  16. MYSER [DIFLUPREDNATE] [Concomitant]
     Indication: RASH
     Dosage: ADEQUATE DOSE
     Route: 061
     Dates: start: 20200305, end: 20200623
  17. VOALLA [Concomitant]
     Indication: RASH
     Dosage: ADEQUATE DOSE
     Route: 061
     Dates: start: 20200512, end: 20200621
  18. DOXORUBICIN HYDROCHLORIDE. [Concomitant]
     Active Substance: DOXORUBICIN HYDROCHLORIDE
     Dosage: 28-21 MG/M2
     Route: 042
     Dates: start: 20200514, end: 20200521
  19. NEUTROGIN [Concomitant]
     Active Substance: LENOGRASTIM
     Indication: NEUTROPHIL COUNT DECREASED
     Dosage: 100 UG
     Route: 058
     Dates: start: 20200228, end: 20200612
  20. POTELIGEO [Suspect]
     Active Substance: MOGAMULIZUMAB-KPKC
     Indication: ADULT T-CELL LYMPHOMA/LEUKAEMIA
     Dosage: 50 MG, 4 DOSES
     Route: 041
     Dates: start: 20200114, end: 20200513
  21. ONCOVIN [Concomitant]
     Active Substance: VINCRISTINE SULFATE
     Indication: ADULT T-CELL LYMPHOMA/LEUKAEMIA
     Dosage: 1 MG/M2
     Route: 042
     Dates: start: 20191128, end: 20200327
  22. DOXORUBICIN HYDROCHLORIDE. [Concomitant]
     Active Substance: DOXORUBICIN HYDROCHLORIDE
     Indication: ADULT T-CELL LYMPHOMA/LEUKAEMIA
     Dosage: 40-30 MG/M2
     Route: 042
     Dates: start: 20191128, end: 20200403
  23. ETOPOSIDE. [Concomitant]
     Active Substance: ETOPOSIDE
     Dosage: 70 MG/M2
     Route: 042
     Dates: start: 20200602, end: 20200604
  24. CYMERIN [Concomitant]
     Active Substance: RANIMUSTINE
     Indication: ADULT T-CELL LYMPHOMA/LEUKAEMIA
     Dosage: 60 MG/M2
     Route: 042
     Dates: start: 20191205, end: 20200403
  25. OLOPATADINE HYDROCHLORIDE OD [Concomitant]
     Indication: PROPHYLAXIS
     Dosage: 10 MG, BID
     Route: 048
     Dates: start: 20200220
  26. FILDESIN [Concomitant]
     Active Substance: VINDESINE SULFATE
     Dosage: 1.7 MG/M2
     Route: 042
     Dates: start: 20200416, end: 20200602
  27. CARBOPLATIN. [Concomitant]
     Active Substance: CARBOPLATIN
     Dosage: 175 MG/M2
     Route: 042
     Dates: start: 20200416, end: 20200602
  28. CYMERIN [Concomitant]
     Active Substance: RANIMUSTINE
     Dosage: 42 MG/M2
     Route: 042
     Dates: start: 20200521, end: 20200521
  29. CHLORPHENIRAMINE MALEATE. [Concomitant]
     Active Substance: CHLORPHENIRAMINE MALEATE
     Indication: PROPHYLAXIS
     Dosage: 6 MG
     Route: 048
     Dates: start: 20200115, end: 20200601
  30. FAMOTIDINE. [Concomitant]
     Active Substance: FAMOTIDINE
     Indication: PROPHYLAXIS
     Dosage: 20 MG, BID
     Route: 048
     Dates: start: 20200221, end: 20200624
  31. FILGRASTIM [Concomitant]
     Active Substance: FILGRASTIM
     Indication: NEUTROPHIL COUNT DECREASED
     Dosage: 75 UG
     Route: 058
     Dates: start: 20200124, end: 20200209
  32. ANTEBATE [Concomitant]
     Active Substance: BETAMETHASONE DIPROPIONATE
     Indication: RASH
     Dosage: ADEQUATE DOSE
     Route: 061
     Dates: start: 20200512, end: 20200621

REACTIONS (1)
  - Rash [Not Recovered/Not Resolved]

NARRATIVE: CASE EVENT DATE: 20200618
